FAERS Safety Report 18408903 (Version 1)
Quarter: 2020Q4

REPORT INFORMATION
  Report Type: Spontaneous
  Country: US (occurrence: US)
  Receive Date: 20201021
  Receipt Date: 20201021
  Transmission Date: 20210114
  Serious: No
  Sender: FDA-Public Use
  Company Number: US-INSMED, INC.-US-INS-20-01449

PATIENT
  Age: 45 Year
  Sex: Female

DRUGS (1)
  1. ARIKAYCE [Suspect]
     Active Substance: AMIKACIN
     Indication: PRODUCT USED FOR UNKNOWN INDICATION
     Route: 055

REACTIONS (8)
  - Throat irritation [Recovered/Resolved]
  - Dysphonia [Unknown]
  - Throat irritation [Unknown]
  - Cough [Recovered/Resolved]
  - Dizziness [Recovered/Resolved]
  - Dizziness [Unknown]
  - Cough [Unknown]
  - Accidental exposure to product [Unknown]

NARRATIVE: CASE EVENT DATE: 20200722
